FAERS Safety Report 8282553-9 (Version None)
Quarter: 2012Q2

REPORT INFORMATION
  Report Type: 
  Country: None (occurrence: None)
  Receive Date: 20120410
  Receipt Date: 20120328
  Transmission Date: 20120825
  Serious: Yes (Hospitalization, Disabling)
  Sender: FDA-Public Use
  Company Number: OXYA20120005

PATIENT
  Age: 34 Year
  Sex: Female

DRUGS (3)
  1. OXYCODONE AND ACETAMINOPHEN [Suspect]
     Indication: OVERDOSE
  2. QUETIAPINE FUMARATE [Suspect]
     Indication: OVERDOSE
  3. CHLORAL HYDRATE (CHLORAL HYDRATE) [Suspect]
     Indication: OVERDOSE

REACTIONS (23)
  - THERAPEUTIC RESPONSE DECREASED [None]
  - CENTRAL NERVOUS SYSTEM LESION [None]
  - LEUKOPENIA [None]
  - GENERAL PHYSICAL HEALTH DETERIORATION [None]
  - ANAEMIA [None]
  - AGGRESSION [None]
  - TRANSAMINASES INCREASED [None]
  - ELECTROCARDIOGRAM QT PROLONGED [None]
  - ANALGESIC DRUG LEVEL INCREASED [None]
  - NECROSIS [None]
  - MULTIPLE DRUG OVERDOSE INTENTIONAL [None]
  - QUADRIPLEGIA [None]
  - MULTI-ORGAN DISORDER [None]
  - RENAL FAILURE [None]
  - AUTONOMIC NERVOUS SYSTEM IMBALANCE [None]
  - MYELOPATHY [None]
  - DECUBITUS ULCER [None]
  - UNRESPONSIVE TO STIMULI [None]
  - MENTAL STATUS CHANGES [None]
  - SUICIDE ATTEMPT [None]
  - HEPATIC FUNCTION ABNORMAL [None]
  - AREFLEXIA [None]
  - SWEAT GLAND DISORDER [None]
